FAERS Safety Report 9595296 (Version 2)
Quarter: 2013Q4

REPORT INFORMATION
  Report Type: Spontaneous
  Country: US (occurrence: US)
  Receive Date: 20131004
  Receipt Date: 20131028
  Transmission Date: 20140711
  Serious: No
  Sender: FDA-Public Use
  Company Number: US-PFIZER INC-2013282898

PATIENT
  Age: 51 Year
  Sex: Female
  Weight: 56.69 kg

DRUGS (3)
  1. LYRICA [Suspect]
     Indication: FIBROMYALGIA
     Dosage: 2 PER DAY
     Dates: end: 201212
  2. LYRICA [Suspect]
     Dosage: 150 MG, DAILY (ONE 50 MG IN MORNING AND TWO 50MG AT NIGHT)
     Route: 048
     Dates: start: 2006
  3. SYNTHROID [Concomitant]
     Indication: THYROID DISORDER
     Dosage: UNK

REACTIONS (4)
  - Intentional drug misuse [Unknown]
  - Pain [Unknown]
  - Body height decreased [Unknown]
  - Weight increased [Unknown]
